FAERS Safety Report 11078512 (Version 1)
Quarter: 2015Q2

REPORT INFORMATION
  Report Type: Spontaneous
  Country: US (occurrence: US)
  Receive Date: 20150430
  Receipt Date: 20150430
  Transmission Date: 20150821
  Serious: Yes (Hospitalization)
  Sender: FDA-Public Use
  Company Number: US-TARO PHARMACEUTICALS U.S.A., INC-2015SUN01076

PATIENT
  Age: 66 Year
  Sex: Male

DRUGS (5)
  1. AMIODARONE [Suspect]
     Active Substance: AMIODARONE
     Indication: PRODUCT USED FOR UNKNOWN INDICATION
     Dosage: UNK
     Route: 065
  2. MILRINONE [Concomitant]
     Active Substance: MILRINONE
     Route: 042
  3. ASPIRIN. [Concomitant]
     Active Substance: ASPIRIN
  4. TORSEMIDE. [Concomitant]
     Active Substance: TORSEMIDE
  5. WARFARIN [Concomitant]
     Active Substance: WARFARIN

REACTIONS (3)
  - Cardiac failure acute [Recovering/Resolving]
  - Acute respiratory failure [Recovering/Resolving]
  - Pulmonary alveolar haemorrhage [Recovering/Resolving]
